FAERS Safety Report 5934204-3 (Version None)
Quarter: 2008Q4

REPORT INFORMATION
  Report Type: 
  Country: None (occurrence: None)
  Receive Date: 20081028
  Receipt Date: 20081028
  Transmission Date: 20090506
  Serious: Yes (Disabling, Other)
  Sender: FDA-Public Use
  Company Number: None

PATIENT
  Age: 20 Year
  Sex: Male
  Weight: 65.7716 kg

DRUGS (2)
  1. CLONOPIN [Suspect]
     Indication: ANXIETY
     Dosage: EVERY 4 HOURS PO
     Route: 048
  2. CLONOPIN [Suspect]
     Indication: DEPRESSION
     Dosage: EVERY 4 HOURS PO
     Route: 048

REACTIONS (3)
  - EUPHORIC MOOD [None]
  - PSYCHOMOTOR HYPERACTIVITY [None]
  - TACHYPHRENIA [None]
